FAERS Safety Report 6382287-1 (Version None)
Quarter: 2009Q3

REPORT INFORMATION
  Report Type: 
  Country: None (occurrence: None)
  Receive Date: 20090928
  Receipt Date: 20090928
  Transmission Date: 20100115
  Serious: No
  Sender: FDA-Public Use
  Company Number: None

PATIENT
  Age: 27 Year
  Sex: Female
  Weight: 104 kg

DRUGS (6)
  1. SOLIRIS [Suspect]
     Indication: HAEMOLYTIC URAEMIC SYNDROME
     Dosage: 900 MG X1 IVBP
     Route: 042
     Dates: start: 20090915
  2. LASIX [Concomitant]
  3. PREDNISONE TAB [Concomitant]
  4. FOLIC ACID [Concomitant]
  5. ALDACTONE [Concomitant]
  6. LOVENOX [Concomitant]

REACTIONS (7)
  - BLOOD PRESSURE DECREASED [None]
  - HYPERVENTILATION [None]
  - INFUSION RELATED REACTION [None]
  - NAUSEA [None]
  - PRESYNCOPE [None]
  - VOMITING [None]
  - WHEEZING [None]
